FAERS Safety Report 5592161-6 (Version None)
Quarter: 2008Q1

REPORT INFORMATION
  Report Type: 
  Country: None (occurrence: None)
  Receive Date: 20080115
  Receipt Date: 20071023
  Transmission Date: 20080703
  Serious: No
  Sender: FDA-Public Use
  Company Number: US-ABBOTT-07P-163-0421613-00

PATIENT
  Sex: Male
  Weight: 127 kg

DRUGS (6)
  1. ADVICOR [Suspect]
     Indication: HIGH DENSITY LIPOPROTEIN DECREASED
     Route: 048
     Dates: start: 20070401
  2. ALLOPURINOL [Concomitant]
     Indication: GOUT
     Route: 048
  3. SITOSTEROL [Concomitant]
     Indication: HIGH DENSITY LIPOPROTEIN DECREASED
     Route: 048
  4. LOTREL [Concomitant]
     Indication: HYPERTENSION
     Route: 048
  5. METFORMIN ER [Concomitant]
     Indication: TYPE 2 DIABETES MELLITUS
     Route: 048
  6. METOPROLOL SUCCINATE [Concomitant]
     Indication: HYPERTENSION
     Route: 048

REACTIONS (2)
  - FLUSHING [None]
  - PARAESTHESIA [None]
